FAERS Safety Report 20347505 (Version 2)
Quarter: 2022Q1

REPORT INFORMATION
  Report Type: Report from Study
  Country: US (occurrence: US)
  Receive Date: 20220118
  Receipt Date: 20220217
  Transmission Date: 20220423
  Serious: Yes (Hospitalization)
  Sender: FDA-Public Use
  Company Number: US-OTSUKA-2022_001688

PATIENT
  Sex: Male
  Weight: 92.08 kg

DRUGS (1)
  1. CEDAZURIDINE\DECITABINE [Suspect]
     Active Substance: CEDAZURIDINE\DECITABINE
     Indication: Lung carcinoma cell type unspecified recurrent
     Dosage: 1 DF (35-100MG), QD (ON DAYS 1-5 OF EACH 28 DAY CYCLE)
     Route: 048
     Dates: start: 20211224

REACTIONS (3)
  - Staphylococcal infection [Unknown]
  - Malaise [Unknown]
  - Product use in unapproved indication [Unknown]
